FAERS Safety Report 15158432 (Version 2)
Quarter: 2018Q3

REPORT INFORMATION
  Report Type: Report from Study
  Country: AU (occurrence: AU)
  Receive Date: 20180718
  Receipt Date: 20180803
  Transmission Date: 20181010
  Serious: Yes (Hospitalization, Other)
  Sender: FDA-Public Use
  Company Number: AU-MYLANLABS-2018M1053072

PATIENT
  Age: 51 Year
  Sex: Male

DRUGS (33)
  1. CLOZARIL [Suspect]
     Active Substance: CLOZAPINE
     Indication: SCHIZOPHRENIA
     Dosage: 12.5 MG, AM
     Route: 048
     Dates: start: 20130321
  2. CLOZARIL [Suspect]
     Active Substance: CLOZAPINE
     Dosage: 25 MG, AM
     Route: 048
     Dates: start: 20130326
  3. CLOZARIL [Suspect]
     Active Substance: CLOZAPINE
     Dosage: 25 MG, AM
     Route: 048
     Dates: start: 20130328
  4. CLOZARIL [Suspect]
     Active Substance: CLOZAPINE
     Dosage: 25 MG, PM
     Route: 048
     Dates: start: 20130324
  5. CLOZARIL [Suspect]
     Active Substance: CLOZAPINE
     Dosage: 100 MG, PM
     Route: 048
     Dates: start: 20130328
  6. CLOZARIL [Suspect]
     Active Substance: CLOZAPINE
     Dosage: 125 MG, PM
     Route: 048
     Dates: start: 20130331
  7. CLOZARIL [Suspect]
     Active Substance: CLOZAPINE
     Dosage: 225 MG, UNK
     Route: 048
     Dates: start: 20140411, end: 20140411
  8. CLOZARIL [Suspect]
     Active Substance: CLOZAPINE
     Dosage: 25 MG, PM
     Route: 048
     Dates: start: 20130325
  9. WARFARIN [Concomitant]
     Active Substance: WARFARIN
     Indication: PRODUCT USED FOR UNKNOWN INDICATION
     Dosage: UNK
     Dates: start: 2014
  10. CLOZARIL [Suspect]
     Active Substance: CLOZAPINE
     Dosage: 25 MG, AM
     Route: 048
     Dates: start: 20130324
  11. ARIPIPRAZOLE. [Concomitant]
     Active Substance: ARIPIPRAZOLE
     Indication: SCHIZOPHRENIA
     Dosage: 200 MG, PM
     Route: 048
     Dates: start: 20140417
  12. CLOZARIL [Suspect]
     Active Substance: CLOZAPINE
     Dosage: 50 MG, PM
     Route: 048
     Dates: start: 20130326
  13. CLOZARIL [Suspect]
     Active Substance: CLOZAPINE
     Dosage: 100 MG, PM
     Route: 048
     Dates: start: 20130329
  14. AMISULPRIDE [Concomitant]
     Active Substance: AMISULPRIDE
     Dosage: 400 MG, PM
     Route: 048
     Dates: start: 20140411
  15. MIRTAZAPINE. [Concomitant]
     Active Substance: MIRTAZAPINE
     Indication: DEPRESSION
     Dosage: 45 MG, PM
     Route: 048
     Dates: start: 20140411
  16. FENOFIBRATE. [Concomitant]
     Active Substance: FENOFIBRATE
     Indication: BLOOD CHOLESTEROL INCREASED
     Dosage: 145 MG, PM
     Route: 048
     Dates: start: 20140411
  17. ARIPIPRAZOLE. [Concomitant]
     Active Substance: ARIPIPRAZOLE
     Dosage: 15 MG, AM
     Route: 048
     Dates: start: 20140424
  18. LORAZEPAM. [Concomitant]
     Active Substance: LORAZEPAM
     Indication: AGITATION
     Dosage: 6 MG, PRN
     Route: 048
  19. CLOZARIL [Suspect]
     Active Substance: CLOZAPINE
     Dosage: 25 MG, AM
     Route: 048
     Dates: start: 20130323
  20. CLOZARIL [Suspect]
     Active Substance: CLOZAPINE
     Dosage: 25 MG, AM
     Route: 048
     Dates: start: 20130327
  21. CLOZARIL [Suspect]
     Active Substance: CLOZAPINE
     Dosage: 50 MG, AM
     Route: 048
     Dates: start: 20130329
  22. CLOZARIL [Suspect]
     Active Substance: CLOZAPINE
     Dosage: 50 MG, AM
     Route: 048
     Dates: start: 20130331
  23. CLOZARIL [Suspect]
     Active Substance: CLOZAPINE
     Dosage: UNK
     Route: 048
     Dates: start: 20140320
  24. CLOZARIL [Suspect]
     Active Substance: CLOZAPINE
     Dosage: 25 MG, AM
     Route: 048
     Dates: start: 20130322
  25. CLOZARIL [Suspect]
     Active Substance: CLOZAPINE
     Dosage: 25 MG, AM
     Route: 048
     Dates: start: 20130327
  26. CLOZARIL [Suspect]
     Active Substance: CLOZAPINE
     Dosage: 75 MG, PM
     Route: 048
     Dates: start: 20130327
  27. AMISULPRIDE [Concomitant]
     Active Substance: AMISULPRIDE
     Indication: SCHIZOPHRENIA
     Dosage: 200 MG, AM
     Route: 048
     Dates: start: 20140411
  28. COLOXYL [Concomitant]
     Active Substance: DOCUSATE SODIUM
     Indication: CONSTIPATION
     Dosage: 1 DF, BID
     Route: 048
  29. ARIPIPRAZOLE. [Concomitant]
     Active Substance: ARIPIPRAZOLE
     Dosage: 10 MG, AM
     Route: 048
     Dates: start: 20140421
  30. CLOZARIL [Suspect]
     Active Substance: CLOZAPINE
     Dosage: 25 MG, AM
     Route: 048
     Dates: start: 20130325
  31. CLOZARIL [Suspect]
     Active Substance: CLOZAPINE
     Dosage: 50 MG, AM
     Route: 048
     Dates: start: 20130330
  32. CLOZARIL [Suspect]
     Active Substance: CLOZAPINE
     Dosage: 100 MG, PM
     Route: 048
     Dates: start: 20130330
  33. TEMAZEPAM. [Concomitant]
     Active Substance: TEMAZEPAM
     Indication: SLEEP DISORDER
     Dosage: 10 MG, PM
     Route: 048
     Dates: start: 20140411

REACTIONS (32)
  - Mitral valve thickening [Unknown]
  - Mitral valve incompetence [Unknown]
  - Liver function test abnormal [Unknown]
  - Red blood cell count decreased [Recovering/Resolving]
  - Pulmonary valve incompetence [Unknown]
  - Blood creatine phosphokinase increased [Unknown]
  - Monocyte count increased [Recovering/Resolving]
  - Troponin increased [Recovering/Resolving]
  - Myocarditis [Unknown]
  - Echocardiogram abnormal [Unknown]
  - Blood triglycerides abnormal [Unknown]
  - Haemoglobin increased [Recovered/Resolved]
  - Haemoglobin decreased [Not Recovered/Not Resolved]
  - Eosinophil count increased [Unknown]
  - Bundle branch block right [Unknown]
  - Electrocardiogram T wave inversion [Unknown]
  - Pericardial effusion [Unknown]
  - Myocardial infarction [Unknown]
  - C-reactive protein increased [Not Recovered/Not Resolved]
  - Neutrophil count increased [Recovering/Resolving]
  - Left ventricular dysfunction [Unknown]
  - Mental impairment [Unknown]
  - Electrocardiogram ST segment elevation [Unknown]
  - Haematocrit decreased [Unknown]
  - Lymphocyte count increased [Recovering/Resolving]
  - White blood cell count increased [Not Recovered/Not Resolved]
  - Tricuspid valve incompetence [Unknown]
  - Body temperature increased [Unknown]
  - Dyspnoea [Unknown]
  - Ventricular hypertrophy [Unknown]
  - Left ventricular dilatation [Unknown]
  - Viral infection [Unknown]

NARRATIVE: CASE EVENT DATE: 2013
